FAERS Safety Report 7882995-7 (Version None)
Quarter: 2011Q4

REPORT INFORMATION
  Report Type: 
  Country: None (occurrence: None)
  Receive Date: 20111102
  Receipt Date: 20110920
  Transmission Date: 20120403
  Serious: Yes (Hospitalization)
  Sender: FDA-Public Use
  Company Number: VE-ROCHE-1001874

PATIENT
  Sex: Female

DRUGS (6)
  1. ENSURE [Concomitant]
  2. DIOVAN [Concomitant]
  3. PANKREON [Concomitant]
  4. ZOLTUM [Concomitant]
  5. XOLAIR [Suspect]
     Indication: ASTHMA
     Dates: start: 20110501
  6. BEROCCA PLUS [Concomitant]

REACTIONS (3)
  - PANCREATITIS [None]
  - BACTERIAL INFECTION [None]
  - HAEMOGLOBIN DECREASED [None]
